FAERS Safety Report 9770276 (Version 1)
Quarter: 2013Q4

REPORT INFORMATION
  Report Type: Spontaneous
  Country: FR (occurrence: FR)
  Receive Date: 20131218
  Receipt Date: 20131218
  Transmission Date: 20140711
  Serious: Yes (Hospitalization)
  Sender: FDA-Public Use
  Company Number: FR-ASTRAZENECA-2013SE90419

PATIENT
  Age: 25296 Day
  Sex: Female

DRUGS (14)
  1. INEXIUM [Suspect]
     Route: 048
     Dates: start: 20130920, end: 20130930
  2. DAFALGAN [Suspect]
     Indication: PAIN
     Route: 048
     Dates: start: 20130920, end: 20130930
  3. MOVICOL [Suspect]
     Route: 048
     Dates: start: 20130929, end: 20130930
  4. TAHOR [Suspect]
     Route: 048
     Dates: start: 20130920, end: 20130930
  5. AKINETON [Concomitant]
  6. HALDOL [Concomitant]
  7. ZYPREXA [Concomitant]
  8. STILNOX [Concomitant]
  9. LOXEN [Concomitant]
     Route: 042
     Dates: start: 20130920, end: 20130926
  10. NOVORAPID [Concomitant]
     Route: 058
     Dates: start: 20130920
  11. PERINDOPRIL [Concomitant]
     Dates: start: 20130920
  12. KARDEGIC [Concomitant]
     Dates: start: 20130920
  13. ALPRAZOLAM [Concomitant]
     Dates: start: 20130922, end: 20130923
  14. AMLODIPINE [Concomitant]
     Dates: start: 20130927

REACTIONS (1)
  - Cholestatic liver injury [Recovered/Resolved]
